FAERS Safety Report 7357960-9 (Version None)
Quarter: 2011Q1

REPORT INFORMATION
  Report Type: 
  Country: None (occurrence: None)
  Receive Date: 20110317
  Receipt Date: 20110315
  Transmission Date: 20110831
  Serious: Yes (Other)
  Sender: FDA-Public Use
  Company Number: US-PFIZER INC-2011057323

PATIENT
  Sex: Female

DRUGS (1)
  1. ALDACTONE [Suspect]
     Dosage: UNK

REACTIONS (1)
  - AUTOIMMUNE DISORDER [None]
